FAERS Safety Report 8188803-1 (Version None)
Quarter: 2012Q1

REPORT INFORMATION
  Report Type: 
  Country: None (occurrence: None)
  Receive Date: 20120306
  Receipt Date: 20120221
  Transmission Date: 20120608
  Serious: Yes (Hospitalization)
  Sender: FDA-Public Use
  Company Number: TR-WATSON-2012-03612

PATIENT
  Age: 38 Year
  Sex: Female

DRUGS (3)
  1. RIFAMPICIN [Suspect]
  2. TETRACYCLINE HYDROCHLORIDE [Suspect]
     Indication: BRUCELLOSIS
     Dosage: X 4 WEEKS PRIOR TO SECOND HOSPITALIZATION
     Route: 065
  3. STREPTOMYCIN [Suspect]

REACTIONS (4)
  - HYPOCALCAEMIA [None]
  - HYPOKALAEMIA [None]
  - ALKALOSIS [None]
  - BLOOD PARATHYROID HORMONE INCREASED [None]
